FAERS Safety Report 4971933-2 (Version None)
Quarter: 2006Q2

REPORT INFORMATION
  Report Type: 
  Country: None (occurrence: None)
  Receive Date: 20060413
  Receipt Date: 20060403
  Transmission Date: 20061013
  Serious: Yes (Hospitalization)
  Sender: FDA-Public Use
  Company Number: US-MERCK-0604USA00490

PATIENT
  Age: 70 Year
  Sex: Female
  Weight: 68 kg

DRUGS (7)
  1. VIOXX [Suspect]
     Indication: OSTEOARTHRITIS
     Route: 048
     Dates: start: 20000515, end: 20020522
  2. VIOXX [Suspect]
     Route: 048
     Dates: start: 20020501, end: 20021001
  3. PREMARIN [Concomitant]
     Route: 048
     Dates: start: 19990826, end: 20020214
  4. MICARDIS [Concomitant]
     Route: 048
     Dates: start: 19990910, end: 20020412
  5. AMBIEN [Concomitant]
     Route: 048
  6. PROTONIX [Concomitant]
     Route: 048
  7. ASPIRIN [Concomitant]
     Route: 048

REACTIONS (11)
  - CEREBRAL HAEMORRHAGE [None]
  - CEREBROVASCULAR ACCIDENT [None]
  - CEREBROVASCULAR DISORDER [None]
  - DECUBITUS ULCER [None]
  - DEPRESSION [None]
  - DRUG HYPERSENSITIVITY [None]
  - EMOTIONAL DISORDER [None]
  - HAEMORRHAGIC STROKE [None]
  - HYPERTENSION [None]
  - SYNCOPE [None]
  - TRANSIENT ISCHAEMIC ATTACK [None]
